FAERS Safety Report 22231589 (Version 1)
Quarter: 2023Q2

REPORT INFORMATION
  Report Type: Spontaneous
  Country: US (occurrence: US)
  Receive Date: 20230420
  Receipt Date: 20230420
  Transmission Date: 20230722
  Serious: No
  Sender: FDA-Public Use
  Company Number: US-drreddys-LIT/USA/23/0162632

PATIENT
  Sex: Female

DRUGS (3)
  1. TOPOTECAN HYDROCHLORIDE [Suspect]
     Active Substance: TOPOTECAN HYDROCHLORIDE
     Indication: Ganglioneuroma
     Dosage: 9 CYCLES
  2. IFOSFAMIDE [Suspect]
     Active Substance: IFOSFAMIDE
     Indication: Ganglioneuroma
     Dosage: 9 CYCLES
  3. CARBOPLATIN [Suspect]
     Active Substance: CARBOPLATIN
     Indication: Ganglioneuroma
     Dosage: 9 CYCLES

REACTIONS (3)
  - Haematotoxicity [Recovered/Resolved]
  - Infection [Recovered/Resolved]
  - Drug ineffective for unapproved indication [Unknown]
